FAERS Safety Report 6569670-6 (Version None)
Quarter: 2010Q1

REPORT INFORMATION
  Report Type: 
  Country: None (occurrence: None)
  Receive Date: 20100204
  Receipt Date: 20100122
  Transmission Date: 20100710
  Serious: Yes (Hospitalization, Disabling, Other)
  Sender: FDA-Public Use
  Company Number: PHEH2010US00851

PATIENT
  Sex: Female

DRUGS (1)
  1. GLEEVEC [Suspect]
     Dosage: 200 MG, QD
     Route: 048
     Dates: start: 20090903

REACTIONS (2)
  - HIP FRACTURE [None]
  - OEDEMA PERIPHERAL [None]
